FAERS Safety Report 9163623 (Version 1)
Quarter: 2013Q1

REPORT INFORMATION
  Report Type: Report from Study
  Country: SE (occurrence: SE)
  Receive Date: 20130314
  Receipt Date: 20130314
  Transmission Date: 20140127
  Serious: Yes (Other)
  Sender: FDA-Public Use
  Company Number: SE-ACTELION-A-CH2013-80270

PATIENT
  Age: 44 Year
  Sex: Male

DRUGS (3)
  1. ZAVESCA [Suspect]
     Indication: NIEMANN-PICK DISEASE
     Dosage: 200 MG, TID
     Route: 048
     Dates: start: 20120314, end: 20120717
  2. ZAVESCA [Suspect]
     Dosage: UNK
     Route: 048
     Dates: start: 20120718
  3. IKTORIVIL [Concomitant]
     Dosage: UNK
     Dates: start: 1990

REACTIONS (3)
  - Diarrhoea [Recovered/Resolved]
  - Ataxia [Recovered/Resolved]
  - Tremor [Unknown]
